FAERS Safety Report 7895912-0 (Version None)
Quarter: 2011Q4

REPORT INFORMATION
  Report Type: 
  Country: None (occurrence: None)
  Receive Date: 20111106
  Receipt Date: 20110901
  Transmission Date: 20120403
  Serious: No
  Sender: FDA-Public Use
  Company Number: US-AMGEN-USASP2011045053

PATIENT
  Age: 53 Year
  Sex: Male
  Weight: 51.247 kg

DRUGS (6)
  1. ISONIAZID [Concomitant]
     Dosage: 100 MG, UNK
  2. METFORMIN HCL [Concomitant]
     Dosage: 500 MG, UNK
  3. ALLOPURINOL [Concomitant]
     Dosage: 100 MG, UNK
  4. ENBREL [Suspect]
     Indication: PRODUCT USED FOR UNKNOWN INDICATION
     Dosage: 50 MG, 2 TIMES/WK
  5. BENAZEPRIL HYDROCHLORIDE [Concomitant]
     Dosage: 40 MG, UNK
  6. NEURONTIN [Concomitant]
     Dosage: 300 MG, UNK

REACTIONS (1)
  - HYPOSMIA [None]
